FAERS Safety Report 6968925-0 (Version None)
Quarter: 2010Q3

REPORT INFORMATION
  Report Type: 
  Country: None (occurrence: None)
  Receive Date: 20100907
  Receipt Date: 20100903
  Transmission Date: 20110219
  Serious: Yes (Hospitalization)
  Sender: FDA-Public Use
  Company Number: IT-MILLENNIUM PHARMACEUTICALS, INC.-2010-03345

PATIENT

DRUGS (5)
  1. VELCADE [Suspect]
     Indication: AMYLOIDOSIS
     Dosage: 1.6 MG, UNK
     Route: 042
     Dates: start: 20090605, end: 20090609
  2. DEXAMETHASONE [Concomitant]
     Dosage: 20 MG, UNK
     Route: 042
     Dates: start: 20090605
  3. ALLOPURINOL [Concomitant]
     Dosage: 100 MG, UNK
     Route: 048
  4. FUROSEMIDE [Concomitant]
     Dosage: 25 MG, UNK
     Route: 048
  5. SPIRONOLACTONE [Concomitant]
     Dosage: 37 MG, UNK
     Route: 048

REACTIONS (4)
  - CARDIOTOXICITY [None]
  - HYPERCREATININAEMIA [None]
  - NEPHROPATHY TOXIC [None]
  - OLIGURIA [None]
